FAERS Safety Report 13974876 (Version 3)
Quarter: 2018Q4

REPORT INFORMATION
  Report Type: Spontaneous
  Country: US (occurrence: US)
  Receive Date: 20170915
  Receipt Date: 20181213
  Transmission Date: 20190204
  Serious: Yes (Life-Threatening, Other)
  Sender: FDA-Public Use
  Company Number: US-ASTRAZENECA-2017SE92483

PATIENT
  Age: 28143 Day
  Sex: Female
  Weight: 100.3 kg

DRUGS (35)
  1. NEXIUM [Suspect]
     Active Substance: ESOMEPRAZOLE MAGNESIUM
     Indication: GASTRIC DISORDER
     Route: 048
     Dates: start: 20151228
  2. NEXIUM [Suspect]
     Active Substance: ESOMEPRAZOLE MAGNESIUM
     Indication: GASTROOESOPHAGEAL REFLUX DISEASE
     Dosage: GENERIC
     Route: 065
  3. NEXIUM [Suspect]
     Active Substance: ESOMEPRAZOLE MAGNESIUM
     Indication: GASTRIC DISORDER
     Route: 048
     Dates: start: 20161201
  4. ZYRTEC [Concomitant]
     Active Substance: CETIRIZINE HYDROCHLORIDE
     Route: 048
  5. AMLODIPINE /NORVASC [Concomitant]
     Route: 048
     Dates: start: 20151228
  6. FENOFIBRATE. [Concomitant]
     Active Substance: FENOFIBRATE
     Route: 065
  7. NEXIUM [Suspect]
     Active Substance: ESOMEPRAZOLE MAGNESIUM
     Indication: GASTROOESOPHAGEAL REFLUX DISEASE
     Route: 048
     Dates: start: 2013, end: 2017
  8. NEXIUM [Suspect]
     Active Substance: ESOMEPRAZOLE MAGNESIUM
     Indication: PEPTIC ULCER
     Route: 048
     Dates: start: 2013, end: 2017
  9. NEXIUM [Suspect]
     Active Substance: ESOMEPRAZOLE MAGNESIUM
     Indication: GASTRIC DISORDER
     Route: 048
     Dates: start: 2013, end: 2017
  10. NEXIUM [Suspect]
     Active Substance: ESOMEPRAZOLE MAGNESIUM
     Indication: GASTRIC DISORDER
     Dosage: GENERIC
     Route: 065
  11. NEXIUM [Suspect]
     Active Substance: ESOMEPRAZOLE MAGNESIUM
     Indication: PEPTIC ULCER
     Route: 048
     Dates: start: 20161201
  12. SYMBICORT [Concomitant]
     Active Substance: BUDESONIDE\FORMOTEROL FUMARATE DIHYDRATE
     Dosage: 160 MCG-4.5MCG/ACTUATION
     Route: 065
  13. ARICEPT [Concomitant]
     Active Substance: DONEPEZIL HYDROCHLORIDE
     Route: 065
  14. NEXIUM [Suspect]
     Active Substance: ESOMEPRAZOLE MAGNESIUM
     Indication: GASTROOESOPHAGEAL REFLUX DISEASE
     Route: 048
     Dates: start: 20161201
  15. SYMBICORT [Concomitant]
     Active Substance: BUDESONIDE\FORMOTEROL FUMARATE DIHYDRATE
     Dosage: 160 MCG
     Route: 065
     Dates: start: 20151228
  16. PRAVASTATIN. [Concomitant]
     Active Substance: PRAVASTATIN
     Route: 048
     Dates: start: 20151228
  17. ASPIRINE [Concomitant]
     Active Substance: ASPIRIN
     Route: 048
     Dates: start: 20151228
  18. PREVNAR [Concomitant]
     Active Substance: PNEUMOCOCCAL 7-VALENT CONJUGATE VACCINE (DIPHTHERIA CRM197 PROTEIN)
     Dosage: 0.5 ML SYRINGE
     Route: 030
  19. CENTRUM [Concomitant]
     Active Substance: VITAMINS
     Route: 048
  20. MEDROL [Concomitant]
     Active Substance: METHYLPREDNISOLONE
     Route: 048
  21. ZOLOFT [Concomitant]
     Active Substance: SERTRALINE HYDROCHLORIDE
     Dosage: ONE AND HALF
     Route: 048
  22. DECADRON [Concomitant]
     Active Substance: DEXAMETHASONE
     Dosage: 2 UNITS
     Route: 065
  23. NEXIUM [Suspect]
     Active Substance: ESOMEPRAZOLE MAGNESIUM
     Indication: PEPTIC ULCER
     Dosage: GENERIC
     Route: 065
  24. PRAVASTATIN. [Concomitant]
     Active Substance: PRAVASTATIN
     Route: 048
  25. ATENOLOL. [Concomitant]
     Active Substance: ATENOLOL
     Route: 048
     Dates: start: 20151228
  26. FISH OIL [Concomitant]
     Active Substance: FISH OIL
     Route: 048
  27. NEXIUM [Suspect]
     Active Substance: ESOMEPRAZOLE MAGNESIUM
     Indication: GASTROOESOPHAGEAL REFLUX DISEASE
     Route: 048
     Dates: start: 20151228
  28. NEXIUM [Suspect]
     Active Substance: ESOMEPRAZOLE MAGNESIUM
     Indication: PEPTIC ULCER
     Route: 048
     Dates: start: 20151228
  29. ZYRTEC [Concomitant]
     Active Substance: CETIRIZINE HYDROCHLORIDE
     Dosage: 81 MG
     Route: 048
     Dates: start: 20151228
  30. VITAMIN D2 [Concomitant]
     Active Substance: ERGOCALCIFEROL
     Dosage: 50,000 UNITS
     Route: 048
  31. ZITHROMAX [Concomitant]
     Active Substance: AZITHROMYCIN DIHYDRATE
     Route: 065
  32. SYNTHROID [Concomitant]
     Active Substance: LEVOTHYROXINE SODIUM
     Dosage: 75 MCG
     Route: 048
     Dates: start: 20151228
  33. LOTREL [Concomitant]
     Active Substance: AMLODIPINE BESYLATE\BENAZEPRIL HYDROCHLORIDE
     Dosage: 10-20 MG
     Route: 048
  34. VITAMIN B12 [Concomitant]
     Active Substance: CYANOCOBALAMIN
     Dosage: 500 MCG
     Route: 048
  35. TEMAZEPAM. [Concomitant]
     Active Substance: TEMAZEPAM
     Route: 048

REACTIONS (4)
  - Chronic kidney disease [Unknown]
  - Renal injury [Unknown]
  - Renal failure [Unknown]
  - Renal impairment [Unknown]

NARRATIVE: CASE EVENT DATE: 20151228
